FAERS Safety Report 9550585 (Version 3)
Quarter: 2020Q2

REPORT INFORMATION
  Report Type: Report from Study
  Country: US (occurrence: US)
  Receive Date: 20130924
  Receipt Date: 20200618
  Transmission Date: 20200714
  Serious: Yes (Hospitalization, Other)
  Sender: FDA-Public Use
  Company Number: US-SANOFI-AVENTIS-2013SA036832

PATIENT
  Age: 54 Year
  Sex: Female

DRUGS (19)
  1. LYRICA [Concomitant]
     Active Substance: PREGABALIN
     Dosage: UNK
  2. VICODIN [Concomitant]
     Active Substance: ACETAMINOPHEN\HYDROCODONE BITARTRATE
     Dosage: UNK
     Route: 065
  3. ERGOCALCIFEROL. [Concomitant]
     Active Substance: ERGOCALCIFEROL
  4. ACETYLSALICYLIC ACID [Concomitant]
     Active Substance: ASPIRIN
     Dosage: UNK
  5. LORATADINE. [Concomitant]
     Active Substance: LORATADINE
     Dosage: UNK
  6. DETROL [Concomitant]
     Active Substance: TOLTERODINE TARTRATE
  7. BENADRYL [Concomitant]
     Active Substance: DIPHENHYDRAMINE HYDROCHLORIDE
     Dosage: UNK
     Route: 065
  8. TERIFLUNOMIDE. [Suspect]
     Active Substance: TERIFLUNOMIDE
     Indication: MULTIPLE SCLEROSIS
     Dosage: 14 MG,QD
     Route: 048
     Dates: start: 20121219
  9. LORAZEPAM. [Concomitant]
     Active Substance: LORAZEPAM
     Dosage: UNK
  10. VITAMIN B2 [RIBOFLAVIN] [Concomitant]
     Dosage: UNK
  11. OXYCONTIN [Concomitant]
     Active Substance: OXYCODONE HYDROCHLORIDE
     Dosage: UNK
  12. CARBAMAZEPINE. [Concomitant]
     Active Substance: CARBAMAZEPINE
     Dosage: UNK
  13. TERIFLUNOMIDE. [Suspect]
     Active Substance: TERIFLUNOMIDE
     Dosage: 14 MG,QD
     Route: 048
     Dates: start: 2014
  14. HYDROCODONE [Concomitant]
     Active Substance: HYDROCODONE
     Dosage: UNK
  15. CYMBALTA [Concomitant]
     Active Substance: DULOXETINE HYDROCHLORIDE
     Dosage: UNK
  16. OXYBUTYNIN. [Concomitant]
     Active Substance: OXYBUTYNIN CHLORIDE
     Dosage: UNK
  17. METAXALONE. [Concomitant]
     Active Substance: METAXALONE
     Dosage: UNK
  18. BACLOFEN. [Concomitant]
     Active Substance: BACLOFEN
     Dosage: UNK
  19. NYSTOP [Concomitant]
     Active Substance: NYSTATIN
     Dosage: UNK

REACTIONS (20)
  - Gallbladder disorder [Recovering/Resolving]
  - Memory impairment [Not Recovered/Not Resolved]
  - Wrong technique in product usage process [Unknown]
  - Dementia Alzheimer^s type [Not Recovered/Not Resolved]
  - Cystitis [Not Recovered/Not Resolved]
  - Diabetes mellitus [Not Recovered/Not Resolved]
  - Product use issue [Unknown]
  - Hospitalisation [Unknown]
  - Progressive multiple sclerosis [Not Recovered/Not Resolved]
  - General physical health deterioration [Not Recovered/Not Resolved]
  - Cough [Unknown]
  - Oxygen therapy [Unknown]
  - Feeding disorder [Not Recovered/Not Resolved]
  - Dysphonia [Not Recovered/Not Resolved]
  - Cataract operation [Unknown]
  - Muscle spasms [Unknown]
  - Muscular weakness [Not Recovered/Not Resolved]
  - Musculoskeletal disorder [Not Recovered/Not Resolved]
  - Alopecia [Unknown]
  - Alopecia [Unknown]

NARRATIVE: CASE EVENT DATE: 201212
